FAERS Safety Report 5628927-3 (Version None)
Quarter: 2008Q1

REPORT INFORMATION
  Report Type: 
  Country: None (occurrence: None)
  Receive Date: 20080214
  Receipt Date: 20080207
  Transmission Date: 20080703
  Serious: Yes (Disabling)
  Sender: FDA-Public Use
  Company Number: 2008S1000200

PATIENT
  Age: 3 Year
  Sex: Female

DRUGS (1)
  1. BRETHINE [Suspect]

REACTIONS (6)
  - ANXIETY [None]
  - ASPERGER'S DISORDER [None]
  - CAESAREAN SECTION [None]
  - DRUG EXPOSURE DURING PREGNANCY [None]
  - MENTAL DISORDER [None]
  - PREMATURE BABY [None]
